FAERS Safety Report 8089868-8 (Version None)
Quarter: 2012Q1

REPORT INFORMATION
  Report Type: 
  Country: None (occurrence: None)
  Receive Date: 20120129
  Receipt Date: 20111018
  Transmission Date: 20120608
  Serious: No
  Sender: FDA-Public Use
  Company Number: US-ABBOTT-11P-163-0866349-00

PATIENT
  Age: 57 Year
  Sex: Male

DRUGS (9)
  1. LEXAPRO [Concomitant]
     Indication: DEPRESSION
  2. PROTONIX [Concomitant]
     Indication: GASTROOESOPHAGEAL REFLUX DISEASE
  3. MULTIVITAMIN [Concomitant]
     Indication: PRODUCT USED FOR UNKNOWN INDICATION
  4. HUMIRA [Suspect]
     Indication: CROHN'S DISEASE
     Dates: start: 20100301
  5. FLOMAX [Concomitant]
     Indication: PROSTATIC DISORDER
  6. VICODIN [Concomitant]
     Indication: BACK PAIN
     Dosage: 5/500 MG 1-1 1/2 TABS AT NIGHT AS NEEDED
  7. ASACOL [Concomitant]
     Indication: CROHN'S DISEASE
  8. ENTOCORT EC [Concomitant]
     Indication: PRODUCT USED FOR UNKNOWN INDICATION
  9. AMBIEN [Concomitant]
     Indication: INSOMNIA

REACTIONS (7)
  - IRRITABLE BOWEL SYNDROME [None]
  - ABDOMINAL PAIN [None]
  - STRESS [None]
  - CROHN'S DISEASE [None]
  - NASOPHARYNGITIS [None]
  - DIARRHOEA [None]
  - OROPHARYNGEAL PAIN [None]
